FAERS Safety Report 7679291-X (Version None)
Quarter: 2011Q3

REPORT INFORMATION
  Report Type: 
  Country: None (occurrence: None)
  Receive Date: 20110812
  Receipt Date: 20101217
  Transmission Date: 20111222
  Serious: Yes (Death, Other)
  Sender: FDA-Public Use
  Company Number: SG-BAYER-2010-004169

PATIENT
  Sex: Male
  Weight: 73 kg

DRUGS (28)
  1. MIXTARD [INSULIN HUMAN] [Concomitant]
     Dosage: DAILY DOSE 62 U
     Route: 058
     Dates: start: 20100119, end: 20100119
  2. CLOPIDOGREL [Concomitant]
     Dosage: DAILY DOSE 2.4 G
     Route: 048
     Dates: start: 20100112, end: 20100112
  3. ANAREX [Concomitant]
     Dosage: DAILY DOSE 2.5 MG
     Route: 048
     Dates: start: 20100112, end: 20100114
  4. MIXTARD [INSULIN HUMAN] [Concomitant]
     Dosage: DAILY DOSE 22 U
     Route: 058
     Dates: start: 20100117, end: 20100118
  5. MIXTARD [INSULIN HUMAN] [Concomitant]
     Dosage: DAILY DOSE 65 U
     Route: 058
     Dates: start: 20100120, end: 20100120
  6. MIXTARD [INSULIN HUMAN] [Concomitant]
     Dosage: DAILY DOSE 62 U
     Route: 058
     Dates: start: 20100112, end: 20100115
  7. SIMVASTATIN [Concomitant]
     Dosage: DAILY DOSE 20 MG
     Route: 048
     Dates: start: 20100112, end: 20100120
  8. DIGOXIN [Concomitant]
     Dosage: DAILY DOSE 125 MG
     Route: 048
     Dates: start: 20100112, end: 20100120
  9. ACARBOSE [Concomitant]
     Dosage: DAILY DOSE 3.125 MG
     Route: 048
     Dates: start: 20100112, end: 20100119
  10. LISINOPRIL [Concomitant]
     Dosage: DAILY DOSE 80 MG
     Route: 048
     Dates: start: 20100112, end: 20100115
  11. OMEPRAZOLE [Concomitant]
     Dosage: DAILY DOSE 80 MG
     Route: 048
     Dates: start: 20100112, end: 20100120
  12. CARVEDILOL [Concomitant]
     Dosage: DAILY DOSE 1500 MG
     Route: 048
     Dates: start: 20100112, end: 20100115
  13. GLUCOSE LOESUNG [Concomitant]
     Dosage: DAILY DOSE 62 U
     Route: 048
     Dates: start: 20100113, end: 20100113
  14. LACTULOSE [Concomitant]
     Dosage: DAILY DOSE 30 ML
     Route: 048
     Dates: start: 20100118, end: 20100120
  15. INSULATARD NPH HUMAN [Concomitant]
     Dosage: DAILY DOSE 8 U
     Route: 058
     Dates: start: 20100118, end: 20100118
  16. ENOXAPARIN SODIUM [Concomitant]
     Dosage: DAILY DOSE 80 MG
     Route: 058
     Dates: start: 20100118, end: 20100118
  17. DUODERM HYDROACTIVE [Concomitant]
     Dosage: UNK
     Route: 003
     Dates: start: 20100114, end: 20100118
  18. RIVAROXABAN [Interacting]
     Indication: THROMBOSIS PROPHYLAXIS
     Dosage: UNK UNK, ONCE
     Route: 065
     Dates: start: 20100113, end: 20100117
  19. ASPIRIN [Suspect]
     Dosage: DAILY DOSE 75 MG
     Route: 048
     Dates: start: 20100112, end: 20100120
  20. ACETAMINOPHEN [Concomitant]
     Dosage: DAILY DOSE 1 G
     Route: 048
     Dates: start: 20100120, end: 20100120
  21. SODIUM PHOSPHATES [Concomitant]
     Dosage: UNK
     Route: 048
     Dates: start: 20100118, end: 20100118
  22. PIPERACILLIN AND TAZOBACTAM [Concomitant]
     Dosage: DAILY DOSE 2.25 G
     Route: 042
     Dates: start: 20100121, end: 20100121
  23. ISMN [Concomitant]
     Dosage: DAILY DOSE 100 MG
     Route: 048
     Dates: start: 20100112, end: 20100112
  24. SODIUM PHOSPHATES [Concomitant]
     Dosage: UNK
     Route: 048
     Dates: start: 20100120, end: 20100120
  25. METFORMIN HCL [Concomitant]
     Dosage: DAILY DOSE 30 MG
     Route: 048
     Dates: start: 20100112, end: 20100120
  26. SPAN-K [Concomitant]
     Dosage: UNK
     Route: 048
     Dates: start: 20100112, end: 20100120
  27. FUROSEMIDE [Concomitant]
     Dosage: DAILY DOSE 1000 MG
     Route: 048
     Dates: start: 20100112, end: 20100120
  28. CIPROFLOXACIN [Concomitant]
     Dosage: UNK
     Route: 048
     Dates: start: 20100114, end: 20100120

REACTIONS (2)
  - INTRACARDIAC THROMBUS [None]
  - HAEMORRHAGIC TRANSFORMATION STROKE [None]
